FAERS Safety Report 10071899 (Version 2)
Quarter: 2014Q2

REPORT INFORMATION
  Report Type: Report from Study
  Country: DE (occurrence: DE)
  Receive Date: 20140411
  Receipt Date: 20140415
  Transmission Date: 20141212
  Serious: Yes (Hospitalization)
  Sender: FDA-Public Use
  Company Number: DE-009507513-1404DEU005649

PATIENT
  Age: 47 Year
  Sex: Male
  Weight: 92 kg

DRUGS (4)
  1. BOCEPREVIR [Suspect]
     Indication: HEPATITIS C
     Dosage: 2400 MG DAILY
     Route: 048
     Dates: start: 20121207
  2. IBUPROFEN [Concomitant]
     Indication: PAIN
     Dosage: 600 MG, QD
     Route: 048
  3. SUBUTEX [Concomitant]
     Indication: THERAPEUTIC PROCEDURE
     Dosage: 8 MG, QD
  4. NOVALGIN (ACETAMINOPHEN (+) CAFFEINE (+) PROPYPHENAZONE) [Concomitant]
     Indication: PAIN
     Dosage: 3X 20 DROPS
     Route: 048
     Dates: start: 20130121

REACTIONS (1)
  - Anaemia [Recovered/Resolved]
